FAERS Safety Report 6339409-8 (Version None)
Quarter: 2009Q3

REPORT INFORMATION
  Report Type: 
  Country: None (occurrence: None)
  Receive Date: 20090828
  Receipt Date: 20090305
  Transmission Date: 20100115
  Serious: Yes (Other)
  Sender: FDA-Public Use
  Company Number: KADN20090009

PATIENT
  Age: 52 Year
  Sex: Female
  Weight: 117.9352 kg

DRUGS (4)
  1. KADIAN [Suspect]
     Indication: COMPLEX REGIONAL PAIN SYNDROME
     Dosage: 50 MG, 1 IN 1 D, ORAL
     Route: 048
     Dates: start: 20090228, end: 20090301
  2. KADIAN [Suspect]
     Indication: PAIN
     Dosage: 50 MG, 1 IN 1 D, ORAL
     Route: 048
     Dates: start: 20090228, end: 20090301
  3. NEURONTIN [Concomitant]
  4. CELEBREX [Concomitant]

REACTIONS (1)
  - DRUG WITHDRAWAL SYNDROME [None]
